FAERS Safety Report 6216983-3 (Version None)
Quarter: 2009Q2

REPORT INFORMATION
  Report Type: 
  Country: None (occurrence: None)
  Receive Date: 20090604
  Receipt Date: 20090529
  Transmission Date: 20091009
  Serious: Yes (Other)
  Sender: FDA-Public Use
  Company Number: 286187

PATIENT
  Age: 47 Year
  Sex: Female

DRUGS (3)
  1. VINCRISTINE [Suspect]
     Indication: DIFFUSE LARGE B-CELL LYMPHOMA
     Dosage: 1.8 MG
  2. CYCLOPHOSPHAMIDE [Suspect]
     Indication: DIFFUSE LARGE B-CELL LYMPHOMA
     Dosage: 1000 MG
  3. DECADRON [Suspect]
     Indication: DIFFUSE LARGE B-CELL LYMPHOMA
     Dosage: 400 MG

REACTIONS (1)
  - TUMOUR LYSIS SYNDROME [None]
